FAERS Safety Report 23593958 (Version 1)
Quarter: 2024Q1

REPORT INFORMATION
  Report Type: Spontaneous
  Country: US (occurrence: US)
  Receive Date: 20240305
  Receipt Date: 20240305
  Transmission Date: 20240410
  Serious: No
  Sender: FDA-Public Use
  Company Number: US-TEVA-VS-3142510

PATIENT

DRUGS (1)
  1. AJOVY [Suspect]
     Active Substance: FREMANEZUMAB-VFRM
     Dosage: STRENGTH- 225 MG / 1.5 ML, SERIALIZED NUMERICAL ID (SNI): UNKNOWN
     Route: 065

REACTIONS (1)
  - Device defective [Unknown]
